FAERS Safety Report 11273443 (Version 1)
Quarter: 2015Q3

REPORT INFORMATION
  Report Type: Spontaneous
  Country: US (occurrence: None)
  Receive Date: 20150714
  Receipt Date: 20150714
  Transmission Date: 20151125
  Serious: No
  Sender: FDA-Public Use
  Company Number: None

PATIENT
  Age: 34 Year
  Sex: Female

DRUGS (5)
  1. AMLODIPINE BESYLATE. [Concomitant]
     Active Substance: AMLODIPINE BESYLATE
  2. MIRENA [Suspect]
     Active Substance: LEVONORGESTREL
     Indication: CONTRACEPTION
  3. BENTYL [Concomitant]
     Active Substance: DICYCLOMINE HYDROCHLORIDE
  4. ACEBUTOLOL [Concomitant]
     Active Substance: ACEBUTOLOL
  5. BUSPIRONE [Concomitant]
     Active Substance: BUSPIRONE HYDROCHLORIDE

REACTIONS (7)
  - Splenomegaly [None]
  - Non-alcoholic steatohepatitis [None]
  - Irritable bowel syndrome [None]
  - Diabetes mellitus [None]
  - Obesity [None]
  - Hypertension [None]
  - Fibromyalgia [None]

NARRATIVE: CASE EVENT DATE: 20120901
